FAERS Safety Report 8989068 (Version 1)
Quarter: 2012Q4

REPORT INFORMATION
  Report Type: 
  Country: ES (occurrence: ES)
  Receive Date: 20121228
  Receipt Date: 20121228
  Transmission Date: 20130627
  Serious: Yes (Death, Hospitalization)
  Sender: FDA-Public Use
  Company Number: ES-ROCHE-1174582

PATIENT
  Age: 69 Year
  Sex: Female

DRUGS (7)
  1. CELLCEPT [Suspect]
     Indication: RENAL TRANSPLANT
     Route: 048
     Dates: start: 20030818
  2. SANDIMMUN NEORAL [Suspect]
     Indication: RENAL TRANSPLANT
     Route: 048
     Dates: start: 20030605, end: 20090704
  3. DACORTIN [Concomitant]
     Indication: RENAL TRANSPLANT
     Route: 048
     Dates: start: 20030818
  4. TAXOL [Concomitant]
     Dosage: 3 cycle
     Route: 065
  5. CAELYX [Concomitant]
     Route: 065
     Dates: start: 201105
  6. GEMCITABINE [Concomitant]
     Route: 065
     Dates: start: 201108
  7. DACARBAZINE [Concomitant]

REACTIONS (1)
  - Angiosarcoma [Fatal]
